FAERS Safety Report 19682569 (Version 10)
Quarter: 2024Q1

REPORT INFORMATION
  Report Type: Report from Study
  Country: CA (occurrence: CA)
  Receive Date: 20210810
  Receipt Date: 20240129
  Transmission Date: 20240410
  Serious: Yes (Hospitalization, Other)
  Sender: FDA-Public Use
  Company Number: CA-TAKEDA-2016TUS023294

PATIENT
  Age: 64 Year
  Sex: Female
  Weight: 62.3 kg

DRUGS (34)
  1. VEDOLIZUMAB [Suspect]
     Active Substance: VEDOLIZUMAB
     Indication: Colitis ulcerative
     Dosage: 300 MILLIGRAM
     Route: 042
     Dates: start: 20161208
  2. VEDOLIZUMAB [Suspect]
     Active Substance: VEDOLIZUMAB
     Dosage: 300 MILLIGRAM, Q6WEEKS
     Route: 042
     Dates: start: 20171012
  3. VEDOLIZUMAB [Suspect]
     Active Substance: VEDOLIZUMAB
     Dosage: 300 MILLIGRAM, Q6WEEKS
     Route: 042
  4. VEDOLIZUMAB [Suspect]
     Active Substance: VEDOLIZUMAB
     Dosage: 300 MILLIGRAM, Q6WEEKS
     Route: 042
  5. VEDOLIZUMAB [Suspect]
     Active Substance: VEDOLIZUMAB
     Dosage: 300 MILLIGRAM, Q6WEEKS
     Route: 042
  6. VEDOLIZUMAB [Suspect]
     Active Substance: VEDOLIZUMAB
     Dosage: 300 MILLIGRAM, Q6WEEKS
     Route: 042
  7. VEDOLIZUMAB [Suspect]
     Active Substance: VEDOLIZUMAB
     Dosage: 300 MILLIGRAM, Q4WEEKS
     Route: 042
     Dates: start: 20211125
  8. VEDOLIZUMAB [Suspect]
     Active Substance: VEDOLIZUMAB
     Dosage: 300 MILLIGRAM, Q4WEEKS
     Route: 042
  9. VEDOLIZUMAB [Suspect]
     Active Substance: VEDOLIZUMAB
     Dosage: 300 MILLIGRAM, Q4WEEKS
     Route: 042
  10. VEDOLIZUMAB [Suspect]
     Active Substance: VEDOLIZUMAB
     Dosage: 300 MILLIGRAM, Q4WEEKS
     Route: 042
  11. VEDOLIZUMAB [Suspect]
     Active Substance: VEDOLIZUMAB
     Dosage: 300 MILLIGRAM, Q4WEEKS
     Route: 042
  12. VEDOLIZUMAB [Suspect]
     Active Substance: VEDOLIZUMAB
     Dosage: 300 MILLIGRAM, Q4WEEKS
     Route: 042
  13. PANTOPRAZOLE MAGNESIUM [Suspect]
     Active Substance: PANTOPRAZOLE MAGNESIUM
     Indication: Abdominal discomfort
     Dosage: 40 MILLIGRAM, BID
     Route: 065
  14. ELMIRON [Concomitant]
     Active Substance: PENTOSAN POLYSULFATE SODIUM
     Dosage: UNK
  15. SLOW K [Concomitant]
     Active Substance: POTASSIUM CHLORIDE
     Dosage: 8 MILLIEQUIVALENT, BID
  16. SUCRALFATE [Concomitant]
     Active Substance: SUCRALFATE
     Dosage: 1 GRAM, BID
     Route: 048
  17. MYRBETRIQ [Concomitant]
     Active Substance: MIRABEGRON
     Dosage: UNK
     Route: 048
  18. AMITRIPTYLINE [Concomitant]
     Active Substance: AMITRIPTYLINE
     Dosage: 25 MILLIGRAM, QD
     Route: 048
  19. MESALAMINE [Concomitant]
     Active Substance: MESALAMINE
     Indication: Premedication
     Dosage: 1.2 GRAM, BID
     Route: 048
  20. METHYLPREDNISOLONE [Concomitant]
     Active Substance: METHYLPREDNISOLONE
     Indication: Premedication
     Dosage: 80 MILLIGRAM
     Route: 042
  21. ACETAMINOPHEN [Concomitant]
     Active Substance: ACETAMINOPHEN
     Indication: Premedication
     Dosage: 650 MILLIGRAM
     Route: 048
  22. DIPHENHYDRAMINE [Concomitant]
     Active Substance: DIPHENHYDRAMINE
     Indication: Premedication
     Dosage: 50 MILLIGRAM
     Route: 048
  23. IMODIUM [Concomitant]
     Active Substance: LOPERAMIDE HYDROCHLORIDE
     Dosage: UNK
  24. MAGNESIUM OXIDE [Concomitant]
     Active Substance: MAGNESIUM OXIDE
     Dosage: 420 MILLIGRAM
     Route: 048
  25. METHYLCOBALAMIN [Concomitant]
     Active Substance: METHYLCOBALAMIN
     Dosage: 1000 MICROGRAM, QOD
     Route: 048
  26. CHOLECALCIFEROL [Concomitant]
     Active Substance: CHOLECALCIFEROL
     Dosage: 1000 INTERNATIONAL UNIT
     Route: 048
  27. MIRABEGRON [Concomitant]
     Active Substance: MIRABEGRON
     Dosage: 50 MILLIGRAM, QD
     Route: 048
  28. ESCITALOPRAM [Concomitant]
     Active Substance: ESCITALOPRAM OXALATE
     Dosage: 20 MILLIGRAM, QD
     Route: 048
  29. THIAMINE [Concomitant]
     Active Substance: THIAMINE
     Dosage: 100 MILLIGRAM, QD
     Route: 048
  30. PANTOPRAZOLE [Concomitant]
     Active Substance: PANTOPRAZOLE
     Dosage: 40 MILLIGRAM
     Route: 048
  31. METOPROLOL [Concomitant]
     Active Substance: METOPROLOL
     Dosage: 25 MILLIGRAM, BID
     Route: 048
  32. RIVAROXABAN [Concomitant]
     Active Substance: RIVAROXABAN
     Dosage: 20 MILLIGRAM, QD
     Route: 048
  33. PENTOSAN POLYSULFATE SODIUM [Concomitant]
     Active Substance: PENTOSAN POLYSULFATE SODIUM
     Dosage: 100 MILLIGRAM, BID
     Route: 048
  34. VITAMIN E [Concomitant]
     Active Substance: .ALPHA.-TOCOPHEROL
     Dosage: UNK
     Route: 048

REACTIONS (10)
  - Colitis ulcerative [Unknown]
  - Rectal haemorrhage [Unknown]
  - Haematochezia [Unknown]
  - Diarrhoea [Unknown]
  - Blood pressure decreased [Unknown]
  - Serum ferritin decreased [Unknown]
  - Haemoglobin decreased [Unknown]
  - Off label use [Unknown]
  - Heart rate increased [Unknown]
  - Arthralgia [Recovered/Resolved]

NARRATIVE: CASE EVENT DATE: 20161208
